FAERS Safety Report 9111748 (Version 1)
Quarter: 2013Q1

REPORT INFORMATION
  Report Type: Spontaneous
  Country: US (occurrence: US)
  Receive Date: 20130219
  Receipt Date: 20130219
  Transmission Date: 20140127
  Serious: No
  Sender: FDA-Public Use
  Company Number: US-BRISTOL-MYERS SQUIBB COMPANY-16743155

PATIENT
  Age: 47 Year
  Sex: Female

DRUGS (8)
  1. ABATACEPT SUBQ INJECTION 125MG/ML [Suspect]
     Indication: RHEUMATOID ARTHRITIS
     Dates: start: 20120217
  2. METHOTREXATE [Concomitant]
  3. HYDROCODONE [Concomitant]
  4. IBUPROFEN [Concomitant]
  5. ZOLOFT [Concomitant]
  6. BACLOFEN [Concomitant]
  7. BUSPIRONE [Concomitant]
  8. ZYRTEC [Concomitant]

REACTIONS (2)
  - Medication error [Unknown]
  - Drug ineffective [Unknown]
